FAERS Safety Report 15260228 (Version 1)
Quarter: 2018Q3

REPORT INFORMATION
  Report Type: Spontaneous
  Country: US (occurrence: US)
  Receive Date: 20180809
  Receipt Date: 20180809
  Transmission Date: 20181010
  Serious: Yes (Other)
  Sender: FDA-Public Use
  Company Number: US-MYLANLABS-2018M1059818

PATIENT
  Age: 22 Year
  Sex: Female

DRUGS (3)
  1. BUPIVACAINE. [Suspect]
     Active Substance: BUPIVACAINE
     Indication: NERVE BLOCK
     Dosage: 10ML OF BUPIVACAINE 0.5% AT INCREMENTS OF 1ML AFTER NEGATIVE ASPIRATION
     Route: 050
  2. LIDOCAINE. [Concomitant]
     Active Substance: LIDOCAINE
     Indication: APPLICATION SITE ANAESTHESIA
     Dosage: 3 ML OF LIDOCAINE 1%
     Route: 050
  3. IOHEXOL [Concomitant]
     Active Substance: IOHEXOL
     Indication: CONTRAST MEDIA REACTION
     Dosage: 4 ML OF IOHEXOL (180MGI/ML)
     Route: 050

REACTIONS (1)
  - Muscle spasms [Recovered/Resolved]
